FAERS Safety Report 12119688 (Version 1)
Quarter: 2016Q1

REPORT INFORMATION
  Report Type: Spontaneous
  Country: US (occurrence: None)
  Receive Date: 20160225
  Receipt Date: 20160225
  Transmission Date: 20160526
  Serious: Yes (Disabling)
  Sender: FDA-Public Use
  Company Number: None

PATIENT
  Age: 83 Year
  Sex: Female

DRUGS (13)
  1. NEXIUM [Suspect]
     Active Substance: ESOMEPRAZOLE MAGNESIUM
     Indication: GASTROOESOPHAGEAL REFLUX DISEASE
     Route: 048
     Dates: start: 20160103, end: 20160224
  2. XANAX [Concomitant]
     Active Substance: ALPRAZOLAM
  3. SODA-BICARBONATE [Concomitant]
  4. VITAMIN B12 [Concomitant]
     Active Substance: CYANOCOBALAMIN
  5. VITAMIN E [Concomitant]
     Active Substance: .ALPHA.-TOCOPHEROL
  6. GABAPENTEN [Concomitant]
  7. VITAMIN A [Concomitant]
     Active Substance: VITAMIN A
  8. VITAMIN D [Concomitant]
     Active Substance: CHOLECALCIFEROL
  9. TRAZONDONE HYDROCHLORIDE (TRAZODONE HYDROCHLORIDE) (UNKNOWN) (TRAZODONE HYDROCHLORIDE) [Concomitant]
     Active Substance: TRAZODONE HYDROCHLORIDE
  10. VITAMIN B-COMPLEX [Concomitant]
     Active Substance: DEXPANTHENOL\NIACINAMIDE\PYRIDOXINE HYDROCHLORIDE\RIBOFLAVIN 5^-PHOSPHATE SODIUM\THIAMINE HYDROCHLORIDE
  11. SYNTHROID [Concomitant]
     Active Substance: LEVOTHYROXINE SODIUM
  12. CALCIUM [Concomitant]
     Active Substance: CALCIUM
  13. MULTI-VITAMIN [Concomitant]
     Active Substance: .ALPHA.-TOCOPHEROL ACETATE, DL-\ASCORBIC ACID\CYANOCOBALAMIN\FLUORIDE ION\FOLIC ACID\NIACIN\PYRIDOXINE\RIBOFLAVIN\THIAMINE\VITAMIN A\VITAMIN D

REACTIONS (2)
  - Arthralgia [None]
  - Bone pain [None]

NARRATIVE: CASE EVENT DATE: 20160222
